FAERS Safety Report 12093766 (Version 5)
Quarter: 2016Q4

REPORT INFORMATION
  Report Type: Spontaneous
  Country: US (occurrence: US)
  Receive Date: 20160219
  Receipt Date: 20161213
  Transmission Date: 20170206
  Serious: No
  Sender: FDA-Public Use
  Company Number: US-PFIZER INC-2016091983

PATIENT
  Age: 77 Year
  Sex: Female

DRUGS (22)
  1. SUTENT [Suspect]
     Active Substance: SUNITINIB MALATE
     Dosage: 25 MG, CYCLIC (2 WEEKS ON/2 WEEKS OFF)
     Route: 048
  2. LIDOCAINE. [Concomitant]
     Active Substance: LIDOCAINE
     Dosage: 1 DF, UNK (1 APP, TOPICAL, ONCE)
     Route: 061
  3. SODIUM CHLORIDE. [Concomitant]
     Active Substance: SODIUM CHLORIDE
     Indication: TRANSFUSION
     Dosage: 250 ML, AS NEEDED
     Dates: start: 20160808
  4. SODIUM CHLORIDE. [Concomitant]
     Active Substance: SODIUM CHLORIDE
     Dosage: 20 ML, AS NEEDED
     Dates: start: 20160215
  5. DOCUSATE [Concomitant]
     Active Substance: DOCUSATE
     Dosage: UNK
  6. ONDANSETRON [Concomitant]
     Active Substance: ONDANSETRON
     Indication: NAUSEA
     Dosage: 4 MG, AS NEEDED, (Q8H)
  7. PANTOPRAZOLE [Concomitant]
     Active Substance: PANTOPRAZOLE SODIUM
     Dosage: 40 MG, DAILY
     Route: 048
  8. IMODIUM [Concomitant]
     Active Substance: LOPERAMIDE HYDROCHLORIDE
     Dosage: UNK
  9. PROTONIX [Concomitant]
     Active Substance: PANTOPRAZOLE SODIUM
     Dosage: UNK
  10. DILTIAZEM CD [Concomitant]
     Active Substance: DILTIAZEM
     Dosage: 240 MG, 1X/DAY, (QHS)
     Route: 048
  11. COLACE [Concomitant]
     Active Substance: DOCUSATE SODIUM
     Indication: CONSTIPATION
     Dosage: 100 MG, AS NEEDED (1 CAP, CAP, PO, BID, PRN )
     Route: 048
  12. ONDANSETRON [Concomitant]
     Active Substance: ONDANSETRON
     Indication: VOMITING
  13. SUTENT [Suspect]
     Active Substance: SUNITINIB MALATE
     Indication: METASTATIC RENAL CELL CARCINOMA
     Dosage: 25 MG, CYCLIC, (DAILY X 14 DAYS, THEN 14 DAYS OFF; REPEAT CYCLE)
     Route: 048
  14. NIFEDIPINE. [Concomitant]
     Active Substance: NIFEDIPINE
     Dosage: UNK
  15. LOPERAMIDE [Concomitant]
     Active Substance: LOPERAMIDE
     Indication: DIARRHOEA
     Dosage: 2 MG, AS NEEDED, (Q4H)
     Route: 048
  16. VITAMINS NOS [Concomitant]
     Active Substance: VITAMINS
     Dosage: 1 DF, DAILY
     Route: 048
  17. OXYCODONE [Concomitant]
     Active Substance: OXYCODONE
     Indication: PAIN
     Dosage: 5 MG, AS NEEDED
     Route: 048
  18. TYLENOL [Concomitant]
     Active Substance: ACETAMINOPHEN
     Indication: PAIN
     Dosage: 1000 MG, AS NEEDED
     Route: 048
  19. VITAMIN D3 [Concomitant]
     Active Substance: CHOLECALCIFEROL
     Dosage: 2000 IU, DAILY
     Route: 048
  20. TYLENOL EXTRA STRENGTH [Concomitant]
     Active Substance: ACETAMINOPHEN
     Dosage: UNK
  21. CALCIUM + MAGNESIUM [Concomitant]
     Dosage: 1 DF, DAILY
     Route: 048
  22. ZOFRAN [Concomitant]
     Active Substance: ONDANSETRON HYDROCHLORIDE
     Dosage: UNK

REACTIONS (4)
  - Pain in extremity [Unknown]
  - Arthralgia [Unknown]
  - Joint swelling [Unknown]
  - Glossodynia [Unknown]
